FAERS Safety Report 5484869-8 (Version None)
Quarter: 2007Q4

REPORT INFORMATION
  Report Type: 
  Country: None (occurrence: None)
  Receive Date: 20071010
  Receipt Date: 20070925
  Transmission Date: 20080405
  Serious: Yes (Life-Threatening, Other)
  Sender: FDA-Public Use
  Company Number: VER_00080_2007

PATIENT
  Sex: Male

DRUGS (1)
  1. EPINEPHRINE [Suspect]
     Indication: ANAPHYLACTIC REACTION
     Dosage: 0.3 MG INTRAMUSCULAR/SUBCUTANEOUS
     Route: 030

REACTIONS (6)
  - ACCIDENTAL NEEDLE STICK [None]
  - DEVICE MALFUNCTION [None]
  - IATROGENIC INJURY [None]
  - INJURY [None]
  - SCRATCH [None]
  - TRAUMATIC HAEMORRHAGE [None]
